FAERS Safety Report 11777986 (Version 1)
Quarter: 2015Q4

REPORT INFORMATION
  Report Type: Spontaneous
  Country: US (occurrence: US)
  Receive Date: 20151125
  Receipt Date: 20151125
  Transmission Date: 20160304
  Serious: Yes (Hospitalization)
  Sender: FDA-Public Use
  Company Number: US-PFIZER INC-2015398019

PATIENT
  Age: 78 Year
  Sex: Male
  Weight: 77 kg

DRUGS (4)
  1. BUMEX [Suspect]
     Active Substance: BUMETANIDE
     Dosage: 2 MG, 2X/DAY (ONE IN MORNING AND ONE AT NIGHT)
  2. INLYTA [Suspect]
     Active Substance: AXITINIB
     Indication: RENAL CANCER
     Dosage: 5 MG, 2X/DAY (EVERY 12 HOUR)
  3. METOPROLOL [Suspect]
     Active Substance: METOPROLOL
     Indication: BLOOD PRESSURE ABNORMAL
     Dosage: 25 MG, 2X/DAY (ONE MORNING AND ONE AT NIGHT)
  4. INLYTA [Suspect]
     Active Substance: AXITINIB
     Indication: LYMPHOMA

REACTIONS (3)
  - Weight decreased [Unknown]
  - Loss of consciousness [Recovered/Resolved]
  - Dehydration [Recovered/Resolved]
